FAERS Safety Report 9881000 (Version 1)
Quarter: 2014Q1

REPORT INFORMATION
  Report Type: Spontaneous
  Country: US (occurrence: US)
  Receive Date: 20140207
  Receipt Date: 20140207
  Transmission Date: 20141002
  Serious: No
  Sender: FDA-Public Use
  Company Number: US-009507513-1402USA002691

PATIENT
  Age: 80 Year
  Sex: Male

DRUGS (2)
  1. MIRALAX [Suspect]
     Indication: CONSTIPATION
     Dosage: 17 G, QD
     Route: 048
     Dates: start: 20140113
  2. MIRALAX [Suspect]
     Dosage: 17 G, BID
     Route: 048
     Dates: start: 20140119

REACTIONS (3)
  - Overdose [Unknown]
  - Pollakiuria [Not Recovered/Not Resolved]
  - Drug effect decreased [Unknown]
